FAERS Safety Report 9972251 (Version 1)
Quarter: 2014Q1

REPORT INFORMATION
  Report Type: Spontaneous
  Country: GB (occurrence: GB)
  Receive Date: 20140306
  Receipt Date: 20140306
  Transmission Date: 20141002
  Serious: Yes (Life-Threatening, Hospitalization, Other)
  Sender: FDA-Public Use
  Company Number: GB-B.I. PHARMACEUTICALS,INC./RIDGEFIELD-2014-BI-09722GD

PATIENT
  Age: 58 Year
  Sex: Female

DRUGS (4)
  1. PERSANTIN RETARD [Suspect]
     Indication: PRODUCT USED FOR UNKNOWN INDICATION
     Dosage: 8000 MG
     Route: 048
  2. PARACETAMOL [Suspect]
     Indication: PRODUCT USED FOR UNKNOWN INDICATION
     Dosage: 8000 MG
     Route: 048
  3. GENTAMICIN [Suspect]
     Indication: PRODUCT USED FOR UNKNOWN INDICATION
     Route: 065
  4. FLUOXETINE [Concomitant]
     Indication: DEPRESSION
     Route: 065

REACTIONS (17)
  - Multi-organ failure [Unknown]
  - Cardiac arrest [Recovered/Resolved]
  - Overdose [Unknown]
  - Hepatic failure [Unknown]
  - Renal failure acute [Recovered/Resolved]
  - Tachycardia [Unknown]
  - Hypotension [Unknown]
  - Metabolic acidosis [Unknown]
  - Delirium [Unknown]
  - Anuria [Unknown]
  - Deafness neurosensory [Not Recovered/Not Resolved]
  - Small intestinal obstruction [Unknown]
  - Hepatic function abnormal [Unknown]
  - Renal impairment [Unknown]
  - Intestinal ischaemia [Unknown]
  - Dysphonia [Recovered/Resolved]
  - Intestinal ischaemia [Unknown]
